FAERS Safety Report 21943353 (Version 3)
Quarter: 2023Q2

REPORT INFORMATION
  Report Type: Spontaneous
  Country: US (occurrence: US)
  Receive Date: 20230202
  Receipt Date: 20230622
  Transmission Date: 20230722
  Serious: No
  Sender: FDA-Public Use
  Company Number: US-BRISTOL-MYERS SQUIBB COMPANY-2023-015545

PATIENT
  Age: 62 Year
  Sex: Male

DRUGS (1)
  1. ZEPOSIA [Suspect]
     Active Substance: OZANIMOD HYDROCHLORIDE
     Indication: Multiple sclerosis
     Route: 048
     Dates: start: 202207

REACTIONS (6)
  - Muscle spasms [Unknown]
  - Muscular weakness [Unknown]
  - Myalgia [Unknown]
  - Pain in extremity [Unknown]
  - Weight decreased [Unknown]
  - Multiple sclerosis relapse [Unknown]
